FAERS Safety Report 4480157-7 (Version None)
Quarter: 2004Q4

REPORT INFORMATION
  Report Type: 
  Country: None (occurrence: None)
  Receive Date: 20041020
  Receipt Date: 20030929
  Transmission Date: 20050328
  Serious: Yes (Other)
  Sender: FDA-Public Use
  Company Number: US-MERCK-0310USA00099

PATIENT
  Age: 84 Year
  Sex: Female
  Weight: 57 kg

DRUGS (1)
  1. VIOXX [Suspect]
     Indication: PAIN
     Route: 048
     Dates: start: 20000101, end: 20020101

REACTIONS (6)
  - BLOOD PRESSURE INCREASED [None]
  - CONVULSION [None]
  - EMOTIONAL DISTRESS [None]
  - HEADACHE [None]
  - NERVOUS SYSTEM DISORDER [None]
  - VISUAL DISTURBANCE [None]
